FAERS Safety Report 4725989-2 (Version None)
Quarter: 2005Q3

REPORT INFORMATION
  Report Type: 
  Country: None (occurrence: None)
  Receive Date: 20050727
  Receipt Date: 20050715
  Transmission Date: 20060218
  Serious: Yes (Hospitalization)
  Sender: FDA-Public Use
  Company Number: 200516444GDDC

PATIENT
  Age: 61 Year
  Sex: Male

DRUGS (15)
  1. DOCETAXEL [Suspect]
     Indication: NON-SMALL CELL LUNG CANCER
     Route: 042
     Dates: start: 20050627, end: 20050627
  2. CETUXIMAB [Suspect]
     Indication: NON-SMALL CELL LUNG CANCER
     Route: 042
     Dates: start: 20050627, end: 20050627
  3. CARBOPLATIN [Suspect]
     Indication: NON-SMALL CELL LUNG CANCER
     Route: 042
     Dates: start: 20050627, end: 20050627
  4. BUPROPION HCL [Concomitant]
     Dates: start: 20020101
  5. LORAZEPAM [Concomitant]
     Dates: start: 20020101
  6. CLARITIN [Concomitant]
     Dates: start: 20050501
  7. ASPIRIN [Concomitant]
     Dates: start: 20020101
  8. ACETAMINOPHEN [Concomitant]
     Dates: start: 19950101
  9. TAGAMET [Concomitant]
  10. DEXAMETHASONE [Concomitant]
     Dates: start: 20050627, end: 20050628
  11. COMPAZINE [Concomitant]
     Dates: start: 20050627
  12. ALOXI [Concomitant]
     Dates: start: 20050627, end: 20050627
  13. DIPHENHYDRAMINE HCL [Concomitant]
     Dates: start: 20050627, end: 20050627
  14. PEPCID [Concomitant]
     Dates: start: 20050627, end: 20050627
  15. DEXAMETHASONE [Concomitant]
     Dates: start: 20050627, end: 20050627

REACTIONS (4)
  - DIZZINESS [None]
  - HEADACHE [None]
  - NAUSEA [None]
  - VOMITING [None]
